FAERS Safety Report 23611320 (Version 1)
Quarter: 2024Q1

REPORT INFORMATION
  Report Type: Spontaneous
  Country: US (occurrence: None)
  Receive Date: 20240306
  Receipt Date: 20240306
  Transmission Date: 20240410
  Serious: Yes (Other)
  Sender: FDA-Public Use
  Company Number: None

PATIENT
  Age: 18 Year
  Sex: Female
  Weight: 61.23 kg

DRUGS (2)
  1. TITANIUM DIOXIDE\ZINC OXIDE [Suspect]
     Active Substance: TITANIUM DIOXIDE\ZINC OXIDE
     Indication: Prophylaxis against solar radiation
     Dosage: OTHER ROUTE : ON THE SKIN ?
     Route: 061
     Dates: start: 20240118
  2. HERBAL [Concomitant]

REACTIONS (2)
  - Application site rash [None]
  - Product use complaint [None]

NARRATIVE: CASE EVENT DATE: 20240118
